FAERS Safety Report 5505191-7 (Version None)
Quarter: 2007Q4

REPORT INFORMATION
  Report Type: 
  Country: None (occurrence: None)
  Receive Date: 20071102
  Receipt Date: 20071029
  Transmission Date: 20080405
  Serious: Yes (Other)
  Sender: FDA-Public Use
  Company Number: US-ASTRAZENECA-2007UW25035

PATIENT
  Sex: Male
  Weight: 20.4 kg

DRUGS (3)
  1. NEXIUM [Suspect]
     Indication: SINUSITIS
     Route: 048
     Dates: start: 20070901
  2. NEXIUM [Suspect]
     Indication: GASTROOESOPHAGEAL REFLUX DISEASE
     Route: 048
     Dates: start: 20070901
  3. PREVACID [Concomitant]

REACTIONS (3)
  - MOVEMENT DISORDER [None]
  - PALLOR [None]
  - PNEUMONIA [None]
